FAERS Safety Report 5489092-9 (Version None)
Quarter: 2007Q4

REPORT INFORMATION
  Report Type: 
  Country: None (occurrence: None)
  Receive Date: 20071005
  Receipt Date: 20070717
  Transmission Date: 20080405
  Serious: Yes (Hospitalization)
  Sender: FDA-Public Use
  Company Number: PHEH2007US10072

PATIENT
  Sex: Female

DRUGS (4)
  1. TEKTURNA [Suspect]
     Indication: HYPERTENSION
     Dosage: 150 MG, QD, ORAL
     Route: 048
  2. POTASSIUM-SPRING AGENTS(NO INGREDIENTS/SUBSTANCES) [Suspect]
  3. ACE INHIBITOR NOS(NO INGREDIENTS/SUBSTANCES) [Suspect]
  4. ANGIOTENSIN II ANTAGONISTS(NO INGREDIENTS/SUBSTANCES) [Suspect]

REACTIONS (1)
  - HYPERKALAEMIA [None]
